FAERS Safety Report 12771977 (Version 1)
Quarter: 2016Q3

REPORT INFORMATION
  Report Type: Spontaneous
  Country: JP (occurrence: JP)
  Receive Date: 20160922
  Receipt Date: 20160922
  Transmission Date: 20161109
  Serious: Yes (Other)
  Sender: FDA-Public Use
  Company Number: JP-BAXTER-2016BAX048208

PATIENT

DRUGS (4)
  1. MESNA FOR INJECTION 1 GRAM [Suspect]
     Active Substance: MESNA
     Indication: CYSTITIS HAEMORRHAGIC
     Route: 065
     Dates: start: 20160720, end: 20160721
  2. MESNA FOR INJECTION 1 GRAM [Suspect]
     Active Substance: MESNA
     Indication: HAEMORRHAGE PROPHYLAXIS
     Route: 065
     Dates: start: 20160702, end: 20160704
  3. IFOSFAMIDE FOR INJECTION [Suspect]
     Active Substance: IFOSFAMIDE
     Indication: LYMPHOMA
     Route: 065
     Dates: start: 20160702, end: 20160704
  4. MESNA FOR INJECTION 1 GRAM [Suspect]
     Active Substance: MESNA
     Indication: OFF LABEL USE

REACTIONS (2)
  - Cystitis haemorrhagic [Recovered/Resolved]
  - Off label use [Recovered/Resolved]

NARRATIVE: CASE EVENT DATE: 20160720
